FAERS Safety Report 6994601-4 (Version None)
Quarter: 2010Q3

REPORT INFORMATION
  Report Type: 
  Country: None (occurrence: None)
  Receive Date: 20100917
  Receipt Date: 20100906
  Transmission Date: 20110219
  Serious: Yes (Hospitalization)
  Sender: FDA-Public Use
  Company Number: DE-GENENTECH-306463

PATIENT

DRUGS (15)
  1. RITUXIMAB [Suspect]
     Indication: HODGKIN'S DISEASE
     Dosage: 375 MG/M2, UNK
     Route: 042
  2. ADRIAMYCIN PFS [Suspect]
     Indication: HODGKIN'S DISEASE
     Dosage: 35 MG/M2, UNK
     Route: 065
  3. ADRIAMYCIN PFS [Suspect]
     Dosage: 35 MG/M2, UNK
     Route: 065
     Dates: start: 20100203
  4. BLEOMYCIN SULFATE [Suspect]
     Indication: HODGKIN'S DISEASE
     Dosage: 10 MG/M2, UNK
     Route: 065
  5. BLEOMYCIN SULFATE [Suspect]
     Dosage: 10 MG/M2, UNK
     Route: 065
     Dates: start: 20100210
  6. PROCARBAZINE [Suspect]
     Indication: HODGKIN'S DISEASE
     Dosage: 100 MG/M2, UNK
     Route: 065
  7. PROCARBAZINE [Suspect]
     Dosage: 100 MG/M2, UNK
     Route: 065
     Dates: start: 20100203
  8. VINCRISTINE [Suspect]
     Indication: HODGKIN'S DISEASE
     Dosage: 2 MG/M2, UNK
     Route: 065
  9. VINCRISTINE [Suspect]
     Dosage: 2 MG/M2, UNK
     Route: 065
     Dates: start: 20100210
  10. ETOPOSIDE [Suspect]
     Indication: HODGKIN'S DISEASE
     Dosage: 200 MG/M2, UNK
     Route: 065
  11. ETOPOSIDE [Suspect]
     Dosage: 200 MG/M2, UNK
     Route: 065
     Dates: start: 20100203
  12. CYCLOPHOSPHAMIDE [Suspect]
     Indication: HODGKIN'S DISEASE
     Dosage: 1250 MG/M2, UNK
     Route: 065
  13. CYCLOPHOSPHAMIDE [Suspect]
     Dosage: 1250 MG/M2, UNK
     Route: 065
     Dates: start: 20100203
  14. PREDNISONE [Suspect]
     Indication: HODGKIN'S DISEASE
     Dosage: 40 MG/M2, UNK
     Route: 065
  15. PREDNISONE [Suspect]
     Dosage: 40 MG/M2, UNK
     Route: 065
     Dates: start: 20100203

REACTIONS (2)
  - PANCYTOPENIA [None]
  - VENOUS THROMBOSIS LIMB [None]
